FAERS Safety Report 7154195-X (Version None)
Quarter: 2010Q4

REPORT INFORMATION
  Report Type: 
  Country: None (occurrence: None)
  Receive Date: 20101213
  Receipt Date: 20101202
  Transmission Date: 20110411
  Serious: Yes (Hospitalization, Other)
  Sender: FDA-Public Use
  Company Number: JP-BAXTER-2010BH029224

PATIENT
  Age: 48 Year
  Sex: Male
  Weight: 70 kg

DRUGS (12)
  1. EXTRANEAL [Suspect]
     Indication: RENAL FAILURE CHRONIC
     Route: 033
     Dates: start: 20101115, end: 20101122
  2. EXTRANEAL [Suspect]
     Indication: FLUID OVERLOAD
     Route: 033
     Dates: start: 20101115, end: 20101122
  3. DIANEAL LOW CALCIUM W/ DEXTROSE 1.5% [Concomitant]
     Indication: RENAL FAILURE CHRONIC
     Route: 033
     Dates: start: 20101115
  4. GLYSENNID [Concomitant]
     Indication: CONSTIPATION
     Route: 048
  5. LASIX [Concomitant]
     Indication: URINE OUTPUT DECREASED
     Route: 048
  6. ALLOPURINOL [Concomitant]
     Indication: HYPERURICAEMIA
     Route: 048
  7. AMLODIPINE BESYLATE [Concomitant]
     Indication: HYPERTENSION
     Route: 048
  8. OLMETEC [Concomitant]
     Indication: HYPERTENSION
     Route: 048
  9. GASTER D [Concomitant]
     Indication: GASTRITIS
     Route: 048
     Dates: start: 20101119
  10. PYRINAZIN [Concomitant]
     Indication: PYREXIA
     Route: 048
  11. NESP [Concomitant]
     Indication: NEPHROGENIC ANAEMIA
     Route: 042
     Dates: start: 20101013
  12. NESP [Concomitant]
     Route: 042
     Dates: start: 20101117

REACTIONS (2)
  - PANCYTOPENIA [None]
  - PYREXIA [None]
